FAERS Safety Report 14838185 (Version 1)
Quarter: 2018Q2

REPORT INFORMATION
  Report Type: Spontaneous
  Country: US (occurrence: US)
  Receive Date: 20180418
  Receipt Date: 20180418
  Transmission Date: 20180711
  Serious: Yes (Other)
  Sender: FDA-Public Use
  Company Number: None

PATIENT
  Age: 41 Year
  Sex: Female
  Weight: 97.2 kg

DRUGS (15)
  1. PRAVASTATIN. [Concomitant]
     Active Substance: PRAVASTATIN
  2. ETODOLAC 500MG [Concomitant]
  3. LEMTRADA [Suspect]
     Active Substance: ALEMTUZUMAB
     Indication: MULTIPLE SCLEROSIS
     Dosage: ?          OTHER FREQUENCY:5 DAYS IN A ROW;?
     Route: 041
     Dates: start: 20151130, end: 20161221
  4. AMPYRA [Concomitant]
     Active Substance: DALFAMPRIDINE
  5. HYDROXYZINE 50MG [Concomitant]
  6. MELOXICAM 15MG [Concomitant]
     Active Substance: MELOXICAM
     Dates: start: 20170608, end: 20171025
  7. MS CONTIN 15MG [Concomitant]
     Dates: start: 20170608, end: 20171025
  8. BACTRIM 400-80MG [Concomitant]
  9. ACYCLOVIR 400MG [Concomitant]
  10. HYOSCYAMINE 0.125MG [Concomitant]
     Active Substance: HYOSCYAMINE
  11. PHENERGAN 25MG [Concomitant]
     Dates: start: 20170608, end: 20171025
  12. BACLOFEN 10MG [Concomitant]
     Active Substance: BACLOFEN
  13. IBUPROFEN 600MG [Concomitant]
     Active Substance: IBUPROFEN
  14. RANITIDINE. [Concomitant]
     Active Substance: RANITIDINE
  15. ROXICODONE 5MG IR [Concomitant]
     Dates: start: 20170608, end: 20171025

REACTIONS (1)
  - Breast cancer stage II [None]

NARRATIVE: CASE EVENT DATE: 20180131
